FAERS Safety Report 8269115-4 (Version None)
Quarter: 2012Q2

REPORT INFORMATION
  Report Type: 
  Country: None (occurrence: None)
  Receive Date: 20120409
  Receipt Date: 20120403
  Transmission Date: 20120825
  Serious: Yes (Other)
  Sender: FDA-Public Use
  Company Number: GB-TEVA-331380ISR

PATIENT
  Age: 83 Year
  Sex: Male

DRUGS (10)
  1. SENNA [Concomitant]
     Dosage: TAKEN AT NIGHT.
     Route: 048
  2. ENOXAPARIN [Concomitant]
     Indication: THROMBOSIS PROPHYLAXIS
     Dosage: STOPPED WHEN PLATELETS DROPPED.
  3. LEVETIRACETAM [Suspect]
     Indication: GRAND MAL CONVULSION
     Route: 048
     Dates: start: 20111020, end: 20111102
  4. PHENOBARBITAL TAB [Concomitant]
     Dosage: LONG TERM.
     Route: 048
  5. SIMVASTATIN [Concomitant]
     Dosage: TAKEN AT NIGHT.
     Route: 048
  6. LEVETIRACETAM [Suspect]
     Route: 048
     Dates: start: 20111123
  7. LEVETIRACETAM [Suspect]
     Route: 048
     Dates: start: 20111103, end: 20111122
  8. FORTISIP [Concomitant]
  9. LEVETIRACETAM [Concomitant]
     Dosage: TAKNE AT NIGHT.
     Route: 048
  10. LATANOPROST [Concomitant]
     Dosage: TAKEN AT NIGHT.
     Route: 061

REACTIONS (4)
  - NEUTROPENIA [None]
  - THROMBOCYTOPENIA [None]
  - BLOOD UREA INCREASED [None]
  - BLOOD SODIUM INCREASED [None]
